FAERS Safety Report 17923476 (Version 1)
Quarter: 2020Q2

REPORT INFORMATION
  Report Type: Report from Study
  Country: NL (occurrence: NL)
  Receive Date: 20200622
  Receipt Date: 20200622
  Transmission Date: 20200714
  Serious: Yes (Hospitalization)
  Sender: FDA-Public Use
  Company Number: NL-ACCORD-186153

PATIENT
  Age: 58 Year
  Sex: Male

DRUGS (6)
  1. FOLIC ACID. [Concomitant]
     Active Substance: FOLIC ACID
     Dosage: 10MG, 2X/W
     Dates: start: 20060607
  2. IBUPROFEN. [Concomitant]
     Active Substance: IBUPROFEN
     Dosage: MG, AS NEEDED
     Dates: end: 20200605
  3. OMEPRAZOLE. [Concomitant]
     Active Substance: OMEPRAZOLE
     Dosage: 20MG, 1X/D
  4. METHOTREXATE. [Suspect]
     Active Substance: METHOTREXATE
     Indication: RHEUMATOID ARTHRITIS
     Dosage: 15MG, 1X/W
     Dates: start: 20200113, end: 20200225
  5. HYDROXYCHLOROQUINE [Concomitant]
     Active Substance: HYDROXYCHLOROQUINE
     Dosage: 200MG, 2X/D
     Dates: start: 20190325
  6. PREDNISOLON [Concomitant]
     Active Substance: PREDNISOLONE
     Dosage: 15MG, 1X/D
     Dates: start: 20200113, end: 20200406

REACTIONS (1)
  - Emphysema [Recovered/Resolved]

NARRATIVE: CASE EVENT DATE: 20200225
